FAERS Safety Report 25543956 (Version 1)
Quarter: 2025Q3

REPORT INFORMATION
  Report Type: Spontaneous
  Country: US (occurrence: None)
  Receive Date: 20250710
  Receipt Date: 20250710
  Transmission Date: 20251020
  Serious: Yes (Disabling, Other)
  Sender: FDA-CTU
  Company Number: None

PATIENT
  Age: 72 Year
  Sex: Male
  Weight: 65.7 kg

DRUGS (1)
  1. PEMGARDA [Suspect]
     Active Substance: PEMIVIBART

REACTIONS (5)
  - Personality change [None]
  - Cognitive disorder [None]
  - Gait disturbance [None]
  - Fall [None]
  - Affective disorder [None]

NARRATIVE: CASE EVENT DATE: 20241117
